FAERS Safety Report 23669391 (Version 1)
Quarter: 2024Q1

REPORT INFORMATION
  Report Type: Spontaneous
  Country: DK (occurrence: DK)
  Receive Date: 20240325
  Receipt Date: 20240325
  Transmission Date: 20240410
  Serious: Yes (Hospitalization)
  Sender: FDA-Public Use
  Company Number: None

PATIENT
  Age: 24 Year
  Sex: Female

DRUGS (4)
  1. BISOPROLOL [Suspect]
     Active Substance: BISOPROLOL\BISOPROLOL FUMARATE
     Indication: Ventricular tachycardia
     Dosage: STRENGTH: 2.5 MG.,  ^TEVA^
     Route: 048
     Dates: start: 20230222, end: 2023
  2. SPIRONOLACTONE [Suspect]
     Active Substance: SPIRONOLACTONE
     Indication: Diuretic therapy
     Dosage: STRENGTH: 25 MG.
     Route: 048
     Dates: start: 20230721, end: 2023
  3. POTASSIUM CHLORIDE [Suspect]
     Active Substance: POTASSIUM CHLORIDE
     Indication: Mineral supplementation
     Dosage: STRENGTH: 750 MG.,  ^EQL PHARMA^
     Route: 048
     Dates: start: 20230901, end: 2023
  4. LISDEXAMFETAMINE DIMESYLATE [Suspect]
     Active Substance: LISDEXAMFETAMINE DIMESYLATE
     Indication: Attention deficit hyperactivity disorder
     Dosage: STRENGTH: 40 MG ?DOSAGE: FIRST 20 MG X1/DAY, THEN GRADUALLY INCREASED. ON 06NOV2023 REACHED 40 MG.
     Route: 048
     Dates: start: 20230713, end: 2023

REACTIONS (2)
  - Maternal exposure during pregnancy [Recovered/Resolved]
  - Placental insufficiency [Recovered/Resolved]

NARRATIVE: CASE EVENT DATE: 20230101
